FAERS Safety Report 17178470 (Version 2)
Quarter: 2020Q1

REPORT INFORMATION
  Report Type: Report from Study
  Country: DE (occurrence: DE)
  Receive Date: 20191219
  Receipt Date: 20200106
  Transmission Date: 20200409
  Serious: Yes (Hospitalization, Other)
  Sender: FDA-Public Use
  Company Number: DE-BRISTOL-MYERS SQUIBB COMPANY-BMS-2018-027273

PATIENT
  Age: 67 Year
  Sex: Female
  Weight: 70 kg

DRUGS (44)
  1. NIVOLUMAB [Suspect]
     Active Substance: NIVOLUMAB
     Indication: PRODUCT USED FOR UNKNOWN INDICATION
     Dosage: 1 DF=208.27 UNIT NOS, Q2WK
     Route: 065
     Dates: start: 20170822, end: 20170822
  2. NIVOLUMAB [Suspect]
     Active Substance: NIVOLUMAB
     Indication: PRODUCT USED FOR UNKNOWN INDICATION
     Dosage: 1 DF =208.37 UNIT NOS, Q2WK
     Route: 065
     Dates: start: 20180207, end: 20180207
  3. ATORVASTATIN [Concomitant]
     Active Substance: ATORVASTATIN
     Indication: PRODUCT USED FOR UNKNOWN INDICATION
     Dosage: 20 MG, QD
     Route: 048
     Dates: start: 200012
  4. NIVOLUMAB [Suspect]
     Active Substance: NIVOLUMAB
     Indication: PRODUCT USED FOR UNKNOWN INDICATION
     Dosage: 1 DF=69.29 UNIT NOS, Q3WK
     Route: 065
     Dates: start: 20170214, end: 20170214
  5. NIVOLUMAB [Suspect]
     Active Substance: NIVOLUMAB
     Indication: PRODUCT USED FOR UNKNOWN INDICATION
     Dosage: 1 DF = 209.15 UNIT NOS, Q2WK
     Route: 065
     Dates: start: 20171213, end: 20171213
  6. NIVOLUMAB [Suspect]
     Active Substance: NIVOLUMAB
     Indication: PRODUCT USED FOR UNKNOWN INDICATION
     Dosage: 1 DF=209.06 UNIT NOS, Q2WK
     Route: 065
     Dates: start: 20180110, end: 20180110
  7. NIVOLUMAB [Suspect]
     Active Substance: NIVOLUMAB
     Indication: PRODUCT USED FOR UNKNOWN INDICATION
     Dosage: 1 DF =206.89 UNIT NOS, Q2WK
     Route: 065
     Dates: start: 20180124, end: 20180124
  8. HYDROCHLOROTHIAZID [Concomitant]
     Active Substance: HYDROCHLOROTHIAZIDE
     Indication: PRODUCT USED FOR UNKNOWN INDICATION
     Dosage: 12.5 MG, QD
     Route: 048
     Dates: start: 200012
  9. TRIMIPRAMIN AL [TRIMIPRAMINE MALEATE] [Concomitant]
     Indication: PRODUCT USED FOR UNKNOWN INDICATION
     Dosage: 50 MG, QD
     Route: 048
     Dates: start: 200012
  10. NIVOLUMAB [Suspect]
     Active Substance: NIVOLUMAB
     Indication: LUNG NEOPLASM MALIGNANT
     Dosage: 1 DF= 70.9 UNIT NOS, Q3WK
     Route: 065
     Dates: start: 20170103, end: 20170103
  11. NIVOLUMAB [Suspect]
     Active Substance: NIVOLUMAB
     Indication: PRODUCT USED FOR UNKNOWN INDICATION
     Dosage: 1 DF=207.97 UNIT NOS, Q2WK
     Route: 065
     Dates: start: 20170905, end: 20170905
  12. NIVOLUMAB [Suspect]
     Active Substance: NIVOLUMAB
     Indication: PRODUCT USED FOR UNKNOWN INDICATION
     Dosage: 1 DF= 206.1 UNIT NOS, Q2WK
     Route: 065
     Dates: start: 20171018, end: 20171018
  13. NIVOLUMAB [Suspect]
     Active Substance: NIVOLUMAB
     Indication: PRODUCT USED FOR UNKNOWN INDICATION
     Dosage: 1 DF=71.36 UNIT NOS, Q3WK
     Route: 065
     Dates: start: 20170124, end: 20170124
  14. NIVOLUMAB [Suspect]
     Active Substance: NIVOLUMAB
     Indication: PRODUCT USED FOR UNKNOWN INDICATION
     Dosage: 1 DF= 212.6 UNIT NOS, Q2WK
     Route: 065
     Dates: start: 20170404, end: 20170404
  15. NIVOLUMAB [Suspect]
     Active Substance: NIVOLUMAB
     Indication: PRODUCT USED FOR UNKNOWN INDICATION
     Dosage: 1 DF=210.63 UNIT NOS, Q2WK
     Route: 065
     Dates: start: 20170418, end: 20170418
  16. NIVOLUMAB [Suspect]
     Active Substance: NIVOLUMAB
     Indication: PRODUCT USED FOR UNKNOWN INDICATION
     Dosage: 1 DF=208.37 UNIT NOS, Q2WK
     Route: 065
     Dates: start: 20170627, end: 20170627
  17. NIVOLUMAB [Suspect]
     Active Substance: NIVOLUMAB
     Indication: PRODUCT USED FOR UNKNOWN INDICATION
     Dosage: 1 DF = 207.68 UNIT NOS, Q2WK
     Route: 065
     Dates: start: 20171115, end: 20171115
  18. IPILIMUMAB [Suspect]
     Active Substance: IPILIMUMAB
     Indication: PRODUCT USED FOR UNKNOWN INDICATION
     Dosage: 1 DF =211.93 UNIT NOS, Q3WK
     Route: 065
     Dates: start: 20170124, end: 20170124
  19. L-THYROX [Concomitant]
     Active Substance: LEVOTHYROXINE SODIUM
     Indication: THYROIDITIS
     Dosage: 25 ?G, QD
     Route: 048
     Dates: start: 20161019, end: 20170403
  20. NIVOLUMAB [Suspect]
     Active Substance: NIVOLUMAB
     Indication: PRODUCT USED FOR UNKNOWN INDICATION
     Dosage: 1 DF=209.15 UNIT NOS, Q2WK
     Route: 065
     Dates: start: 20170516, end: 20170516
  21. NIVOLUMAB [Suspect]
     Active Substance: NIVOLUMAB
     Indication: PRODUCT USED FOR UNKNOWN INDICATION
     Dosage: 1 DF=206 UNIT NOS, Q2WK
     Route: 065
     Dates: start: 20170711, end: 20170711
  22. NIVOLUMAB [Suspect]
     Active Substance: NIVOLUMAB
     Indication: PRODUCT USED FOR UNKNOWN INDICATION
     Dosage: 1 DF=206.2 UNIT NOS, Q2WK
     Route: 065
     Dates: start: 20170808, end: 20170808
  23. NIVOLUMAB [Suspect]
     Active Substance: NIVOLUMAB
     Indication: PRODUCT USED FOR UNKNOWN INDICATION
     Dosage: 1 DF=206.1 UNIT NOS, Q2WK
     Route: 065
     Dates: start: 20170321, end: 20170321
  24. NIVOLUMAB [Suspect]
     Active Substance: NIVOLUMAB
     Indication: PRODUCT USED FOR UNKNOWN INDICATION
     Dosage: 1 DF=208.46 UNIT NOS, Q2WK
     Route: 065
     Dates: start: 20170504, end: 20170504
  25. NIVOLUMAB [Suspect]
     Active Substance: NIVOLUMAB
     Indication: PRODUCT USED FOR UNKNOWN INDICATION
     Dosage: 1 DF=204.43 UNIT NOS, Q2WK
     Route: 065
     Dates: start: 20170530, end: 20170530
  26. NIVOLUMAB [Suspect]
     Active Substance: NIVOLUMAB
     Indication: PRODUCT USED FOR UNKNOWN INDICATION
     Dosage: 1 DF=204.63 UNIT NOS, Q2WK
     Route: 065
     Dates: start: 20170725, end: 20170725
  27. NIVOLUMAB [Suspect]
     Active Substance: NIVOLUMAB
     Indication: PRODUCT USED FOR UNKNOWN INDICATION
     Dosage: 1 DF=209.65 UNIT NOS, Q2WK
     Route: 065
     Dates: start: 20171004, end: 20171004
  28. NIVOLUMAB [Suspect]
     Active Substance: NIVOLUMAB
     Indication: PRODUCT USED FOR UNKNOWN INDICATION
     Dosage: 1 DF= 204.33 UNIT NOS, Q2WK
     Route: 065
     Dates: start: 20171227, end: 20171227
  29. IPILIMUMAB [Suspect]
     Active Substance: IPILIMUMAB
     Indication: MALIGNANT MELANOMA
     Dosage: 1 DF =210 UNIT NOS, Q3WK
     Route: 065
     Dates: start: 20161214, end: 20161214
  30. ENALAPRIL [Concomitant]
     Active Substance: ENALAPRIL
     Indication: PRODUCT USED FOR UNKNOWN INDICATION
     Dosage: 5 MG, QD
     Route: 048
     Dates: start: 200012
  31. NIVOLUMAB [Suspect]
     Active Substance: NIVOLUMAB
     Indication: MALIGNANT MELANOMA
     Dosage: 1 DF=70 UNIT NOS,Q3WK
     Route: 065
     Dates: start: 20161214, end: 20161214
  32. NIVOLUMAB [Suspect]
     Active Substance: NIVOLUMAB
     Indication: PRODUCT USED FOR UNKNOWN INDICATION
     Dosage: 1 DF = 211.22 UNIT NOS, Q2WK
     Route: 065
     Dates: start: 20170307, end: 20170307
  33. NIVOLUMAB [Suspect]
     Active Substance: NIVOLUMAB
     Indication: PRODUCT USED FOR UNKNOWN INDICATION
     Dosage: 1 DF=205.02 UNIT NOS, Q2WK
     Route: 065
     Dates: start: 20170920, end: 20170920
  34. IPILIMUMAB [Suspect]
     Active Substance: IPILIMUMAB
     Indication: PRODUCT USED FOR UNKNOWN INDICATION
     Dosage: 1 DF = 207.36 UNIT NOS, Q3WK
     Route: 065
     Dates: start: 20170214, end: 20170214
  35. NEBIVOLOL. [Concomitant]
     Active Substance: NEBIVOLOL
     Indication: PRODUCT USED FOR UNKNOWN INDICATION
     Dosage: 5 MG, QD
     Route: 048
     Dates: start: 200012
  36. PANTOZOL CONTROL [Concomitant]
     Active Substance: PANTOPRAZOLE SODIUM
     Indication: PROPHYLAXIS
     Dosage: 20 MG, QD
     Route: 048
     Dates: start: 20161019
  37. METAMIZOL [Concomitant]
     Active Substance: METAMIZOLE SODIUM
     Indication: PRODUCT USED FOR UNKNOWN INDICATION
     Dosage: 2000 MG, QD
     Route: 048
     Dates: start: 20161019
  38. NIVOLUMAB [Suspect]
     Active Substance: NIVOLUMAB
     Indication: PRODUCT USED FOR UNKNOWN INDICATION
     Dosage: 1 DF =212.01 UNIT NOS, Q2WK
     Route: 065
     Dates: start: 20170613, end: 20170613
  39. NIVOLUMAB [Suspect]
     Active Substance: NIVOLUMAB
     Indication: PRODUCT USED FOR UNKNOWN INDICATION
     Dosage: 1 DF= 202.36 UNIT NOS, Q2WK
     Route: 065
     Dates: start: 20171101, end: 20171101
  40. NIVOLUMAB [Suspect]
     Active Substance: NIVOLUMAB
     Indication: PRODUCT USED FOR UNKNOWN INDICATION
     Dosage: 1 DF = 203.54 UNIT NOS, Q2WK
     Route: 065
     Dates: start: 20171129, end: 20171129
  41. IPILIMUMAB [Suspect]
     Active Substance: IPILIMUMAB
     Indication: LUNG NEOPLASM MALIGNANT
     Dosage: 1 DF =212.7 UNIT NOS, Q3WK
     Route: 065
     Dates: start: 20170103, end: 20170103
  42. ACETYLSALICYLIC ACID [Concomitant]
     Active Substance: ASPIRIN
     Indication: PRODUCT USED FOR UNKNOWN INDICATION
     Dosage: 100 MG, QD
     Route: 048
     Dates: start: 200012
  43. ATARAX [Concomitant]
     Active Substance: HYDROXYZINE HYDROCHLORIDE
     Indication: PRODUCT USED FOR UNKNOWN INDICATION
     Dosage: 25 MG, QD
     Route: 048
     Dates: start: 20161019
  44. L-THYROX [Concomitant]
     Active Substance: LEVOTHYROXINE SODIUM
     Indication: PRODUCT USED FOR UNKNOWN INDICATION
     Dosage: 50 ?G, QD
     Route: 048
     Dates: start: 20170404

REACTIONS (1)
  - Pneumonitis [Recovered/Resolved]

NARRATIVE: CASE EVENT DATE: 20180226
